FAERS Safety Report 9633707 (Version 3)
Quarter: 2013Q4

REPORT INFORMATION
  Report Type: Report from Study
  Country: DE (occurrence: DE)
  Receive Date: 20131021
  Receipt Date: 20131211
  Transmission Date: 20140711
  Serious: Yes (Hospitalization)
  Sender: FDA-Public Use
  Company Number: DE-ROCHE-1291678

PATIENT
  Age: 67 Year
  Sex: Female
  Weight: 56.6 kg

DRUGS (3)
  1. BEVACIZUMAB [Suspect]
     Indication: OVARIAN CANCER
     Dosage: MOST RECENT DOSE PRIOR TO SAE: 26/SEP/2013
     Route: 042
     Dates: start: 20120823, end: 20131016
  2. PACLITAXEL [Suspect]
     Indication: OVARIAN CANCER
     Dosage: MOST RECENT DOSE PRIOR TO SAE: 06/DEC/2012
     Route: 042
     Dates: start: 20120823, end: 20131016
  3. CARBOPLATIN [Suspect]
     Indication: OVARIAN CANCER
     Dosage: MOST RECENT DOSE PRIOR TO SAE: 06/DEC/2012
     Route: 042
     Dates: start: 20120823, end: 20131016

REACTIONS (1)
  - Acute prerenal failure [Recovered/Resolved]
